FAERS Safety Report 16741533 (Version 1)
Quarter: 2019Q3

REPORT INFORMATION
  Report Type: Spontaneous
  Country: US (occurrence: US)
  Receive Date: 20190826
  Receipt Date: 20190826
  Transmission Date: 20191005
  Serious: No
  Sender: FDA-Public Use
  Company Number: US-JNJFOC-20190830704

PATIENT
  Sex: Female
  Weight: 59.02 kg

DRUGS (1)
  1. NIZORAL [Suspect]
     Active Substance: KETOCONAZOLE
     Indication: PRURITUS
     Dosage: BOTTLE 2 OR 3 TIMES PER YEAR
     Route: 065

REACTIONS (2)
  - Pruritus [Unknown]
  - Scratch [Unknown]
